FAERS Safety Report 10210427 (Version 1)
Quarter: 2014Q2

REPORT INFORMATION
  Report Type: Spontaneous
  Country: AU (occurrence: AU)
  Receive Date: 20140602
  Receipt Date: 20140602
  Transmission Date: 20141212
  Serious: Yes (Other)
  Sender: FDA-Public Use
  Company Number: AU-PFIZER INC-2014144269

PATIENT
  Sex: Female

DRUGS (2)
  1. SALAZOPYRIN [Suspect]
     Indication: RHEUMATOID ARTHRITIS
     Dosage: 500 MG, UNK
     Dates: start: 20140210, end: 201402
  2. SALAZOPYRIN [Suspect]
     Dosage: 1000 MG, 2X/DAY
     Dates: start: 201402, end: 20140428

REACTIONS (3)
  - Weight increased [Recovering/Resolving]
  - Thirst [Unknown]
  - Polydipsia [Unknown]
